FAERS Safety Report 15982189 (Version 2)
Quarter: 2019Q2

REPORT INFORMATION
  Report Type: Spontaneous
  Country: US (occurrence: US)
  Receive Date: 20190219
  Receipt Date: 20190410
  Transmission Date: 20190711
  Serious: Yes (Hospitalization, Other)
  Sender: FDA-Public Use
  Company Number: US-UCBSA-2018026354

PATIENT
  Age: 62 Year
  Sex: Male
  Weight: 117 kg

DRUGS (2)
  1. BRIVIACT [Suspect]
     Active Substance: BRIVARACETAM
     Indication: SEIZURE
     Dosage: 100 MG, 2X/DAY (BID)
     Dates: start: 20170724
  2. KEPPRA [Suspect]
     Active Substance: LEVETIRACETAM
     Indication: PRODUCT USED FOR UNKNOWN INDICATION
     Dosage: UNK

REACTIONS (12)
  - Contusion [Recovered/Resolved]
  - Therapeutic product effect decreased [Unknown]
  - Facial bones fracture [Recovered/Resolved]
  - Petit mal epilepsy [Recovering/Resolving]
  - Fatigue [Not Recovered/Not Resolved]
  - Seizure [Unknown]
  - Fall [Recovered/Resolved]
  - Tooth fracture [Recovered/Resolved]
  - Spinal column injury [Recovered/Resolved]
  - Hand fracture [Recovered/Resolved]
  - Injury [Unknown]
  - Anger [Recovering/Resolving]

NARRATIVE: CASE EVENT DATE: 2018
